FAERS Safety Report 24917974 (Version 1)
Quarter: 2025Q1

REPORT INFORMATION
  Report Type: Spontaneous
  Country: CN (occurrence: CN)
  Receive Date: 20250203
  Receipt Date: 20250203
  Transmission Date: 20250409
  Serious: Yes (Other)
  Sender: GE HEALTHCARE
  Company Number: CN-GE HEALTHCARE-2025CSU001038

PATIENT
  Age: 38 Year
  Sex: Male

DRUGS (1)
  1. OMNIPAQUE [Suspect]
     Active Substance: IOHEXOL
     Indication: Computerised tomogram abdomen
     Route: 042
     Dates: start: 20250117, end: 20250117

REACTIONS (2)
  - Phlebitis superficial [Recovering/Resolving]
  - Administration site extravasation [Recovering/Resolving]

NARRATIVE: CASE EVENT DATE: 20250117
